FAERS Safety Report 4414731-0 (Version None)
Quarter: 2004Q3

REPORT INFORMATION
  Report Type: 
  Country: None (occurrence: None)
  Receive Date: 20040804
  Receipt Date: 20030730
  Transmission Date: 20050211
  Serious: No
  Sender: FDA-Public Use
  Company Number: US-BRISTOL-MYERS SQUIBB COMPANY-12340907

PATIENT
  Age: 79 Year
  Sex: Female
  Weight: 76 kg

DRUGS (7)
  1. GLUCOVANCE [Suspect]
     Indication: DIABETES MELLITUS NON-INSULIN-DEPENDENT
  2. LIPITOR [Concomitant]
  3. ASPIRIN [Concomitant]
  4. CENTRUM [Concomitant]
  5. CALCIUM [Concomitant]
  6. DYAZIDE [Concomitant]
  7. ATENOLOL [Concomitant]

REACTIONS (1)
  - FEELING ABNORMAL [None]
